FAERS Safety Report 7544443-6 (Version None)
Quarter: 2011Q2

REPORT INFORMATION
  Report Type: 
  Country: None (occurrence: None)
  Receive Date: 20110613
  Receipt Date: 20090608
  Transmission Date: 20111010
  Serious: Yes (Hospitalization, Other)
  Sender: FDA-Public Use
  Company Number: PHHO2007US20889

PATIENT
  Sex: Male
  Weight: 91 kg

DRUGS (2)
  1. MYFORTIC [Suspect]
     Indication: RENAL TRANSPLANT
     Dosage: 720 MG, BID
     Route: 048
     Dates: start: 20071113
  2. MYFORTIC [Suspect]
     Dosage: 540 MG, BID
     Route: 048
     Dates: start: 20071227

REACTIONS (21)
  - URINE OUTPUT DECREASED [None]
  - BACTERAEMIA [None]
  - UROSEPSIS [None]
  - DYSPNOEA [None]
  - CHEST PAIN [None]
  - URINARY TRACT INFECTION [None]
  - URINARY RETENTION [None]
  - DYSURIA [None]
  - HAEMATURIA [None]
  - CYSTOSCOPY [None]
  - CHEST DISCOMFORT [None]
  - MALAISE [None]
  - BLOOD CREATININE INCREASED [None]
  - URINARY SEDIMENT PRESENT [None]
  - ANXIETY [None]
  - NAUSEA [None]
  - VOMITING [None]
  - DIARRHOEA [None]
  - PYREXIA [None]
  - CHILLS [None]
  - MYALGIA [None]
